FAERS Safety Report 16613860 (Version 1)
Quarter: 2019Q3

REPORT INFORMATION
  Report Type: Spontaneous
  Country: IT (occurrence: IT)
  Receive Date: 20190723
  Receipt Date: 20190723
  Transmission Date: 20191004
  Serious: Yes (Hospitalization)
  Sender: FDA-Public Use
  Company Number: IT-ASTRAZENECA-2019SF03163

PATIENT
  Age: 71 Year
  Sex: Female

DRUGS (6)
  1. TOTALIP [Concomitant]
     Active Substance: ATORVASTATIN
     Route: 048
     Dates: start: 20190125
  2. LANSOPRAZOLE. [Concomitant]
     Active Substance: LANSOPRAZOLE
  3. BRILIQUE [Suspect]
     Active Substance: TICAGRELOR
     Indication: ACUTE MYOCARDIAL INFARCTION
     Route: 048
     Dates: start: 20190125, end: 20190502
  4. CARDIOASPIRIN [Suspect]
     Active Substance: ASPIRIN
     Indication: ACUTE MYOCARDIAL INFARCTION
     Route: 048
     Dates: start: 20190125, end: 20190502
  5. BISOPROLOL FUMARATE. [Concomitant]
     Active Substance: BISOPROLOL FUMARATE
     Route: 048
     Dates: start: 20190125
  6. COLECALCIFEROL [Concomitant]
     Active Substance: CHOLECALCIFEROL

REACTIONS (4)
  - Drug interaction [Recovering/Resolving]
  - Syncope [Recovering/Resolving]
  - Rectal haemorrhage [Recovering/Resolving]
  - Head injury [Recovering/Resolving]

NARRATIVE: CASE EVENT DATE: 20190501
